FAERS Safety Report 18252120 (Version 1)
Quarter: 2020Q3

REPORT INFORMATION
  Report Type: Spontaneous
  Country: US (occurrence: US)
  Receive Date: 20200910
  Receipt Date: 20200910
  Transmission Date: 20201103
  Serious: No
  Sender: FDA-Public Use
  Company Number: US-FARMAPROD-202003-0294

PATIENT
  Sex: Female

DRUGS (4)
  1. GLAUCOMA DROPS [Concomitant]
  2. GENTEAL MILD [Concomitant]
     Active Substance: HYPROMELLOSE 2910 (4000 MPA.S)
  3. OXERVATE [Suspect]
     Active Substance: CENEGERMIN-BKBJ
     Indication: NEUROTROPHIC KERATOPATHY
     Route: 047
     Dates: start: 20200302
  4. SYSTANE DRY EYE RELIEF [Concomitant]

REACTIONS (11)
  - Eye pain [Recovered/Resolved]
  - Eyelid pain [Unknown]
  - Drug ineffective [Unknown]
  - Eyelid disorder [Unknown]
  - Eye discharge [Not Recovered/Not Resolved]
  - Ocular discomfort [Not Recovered/Not Resolved]
  - Lacrimation increased [Not Recovered/Not Resolved]
  - Foreign body sensation in eyes [Unknown]
  - Eye irritation [Unknown]
  - Photophobia [Unknown]
  - Headache [Not Recovered/Not Resolved]
